FAERS Safety Report 20860171 (Version 1)
Quarter: 2022Q2

REPORT INFORMATION
  Report Type: Spontaneous
  Country: US (occurrence: None)
  Receive Date: 20220520
  Receipt Date: 20220520
  Transmission Date: 20220721
  Serious: Yes (Hospitalization)
  Sender: FDA-Public Use
  Company Number: None

PATIENT
  Age: 85 Year
  Sex: Female

DRUGS (1)
  1. SILDENAFIL CITRATE [Suspect]
     Active Substance: SILDENAFIL CITRATE
     Indication: Pulmonary arterial hypertension
     Dosage: 20 MG THREE TIMES A DAY ORAL?
     Route: 048
     Dates: start: 202107

REACTIONS (2)
  - Fluid retention [None]
  - Cardiac failure [None]

NARRATIVE: CASE EVENT DATE: 20220502
